FAERS Safety Report 8013921-8 (Version None)
Quarter: 2011Q4

REPORT INFORMATION
  Report Type: 
  Country: None (occurrence: None)
  Receive Date: 20111229
  Receipt Date: 20111221
  Transmission Date: 20120403
  Serious: Yes (Life-Threatening, Hospitalization, Other)
  Sender: FDA-Public Use
  Company Number: AU-ROCHE-562108

PATIENT
  Sex: Male
  Weight: 89.5 kg

DRUGS (46)
  1. CYCLOPHOSPHAMIDE [Suspect]
     Indication: DIFFUSE LARGE B-CELL LYMPHOMA
     Route: 042
  2. VINCRISTINE [Suspect]
     Indication: DIFFUSE LARGE B-CELL LYMPHOMA
     Route: 042
  3. ENOXAPARIN SODIUM [Concomitant]
     Dates: start: 20080418, end: 20080420
  4. MULTIVITAMIN NOS [Concomitant]
     Dosage: TAKEN DAILY
     Dates: start: 20071105, end: 20080715
  5. FUROSEMIDE [Concomitant]
  6. FUROSEMIDE [Concomitant]
     Dates: start: 20080515, end: 20080531
  7. VITAMIN K TAB [Concomitant]
     Dates: start: 20080421, end: 20080421
  8. KEFLIN [Concomitant]
     Dates: start: 20080501, end: 20080505
  9. COLOXYL WITH SENNA [Concomitant]
     Dates: start: 20071011, end: 20080101
  10. SLOW-K [Concomitant]
  11. CHLORAMPHENICOL [Concomitant]
  12. ALLOPURINOL [Concomitant]
     Dates: start: 20071117, end: 20080819
  13. FENTANYL [Concomitant]
     Dates: start: 20071128, end: 20080219
  14. WARFARIN SODIUM [Concomitant]
     Dates: start: 20080410, end: 20080420
  15. NILSTAT [Concomitant]
     Dates: start: 20080313, end: 20080315
  16. MAXOLON [Concomitant]
     Dosage: REPORTED AS 'MAXALON'
     Dates: start: 20080601, end: 20080601
  17. AVASTIN [Suspect]
     Route: 042
  18. PREDNISOLONE [Suspect]
     Indication: DIFFUSE LARGE B-CELL LYMPHOMA
     Dosage: GIVEN ON DAY 1, 2, 3, 4, 5 EVERY 21 DAY CYCLE
     Route: 048
  19. ENOXAPARIN SODIUM [Concomitant]
     Dates: start: 20080410, end: 20080417
  20. DOXORUBICIN HYDROCHLORIDE [Suspect]
     Indication: DIFFUSE LARGE B-CELL LYMPHOMA
     Route: 042
  21. COLOXYL WITH SENNA [Concomitant]
     Dosage: REPORTED AS 'TI POD'
     Dates: start: 20080602, end: 20080602
  22. NILSTAT [Concomitant]
  23. KYTRIL [Concomitant]
     Dates: start: 20080501, end: 20080501
  24. BIOTENE MOUTHWASH [Concomitant]
     Dosage: DRUG NAME REPORTED AS BIOTENE MOUTH WASH
  25. ENOXAPARIN SODIUM [Concomitant]
     Dates: start: 20080714, end: 20080716
  26. CLARATYNE [Concomitant]
     Dates: start: 20080410, end: 20080410
  27. MIDAZOLAM [Concomitant]
     Dates: start: 20080623, end: 20080623
  28. LACTULOSE [Concomitant]
     Dates: start: 20080602, end: 20080602
  29. AVASTIN [Suspect]
     Route: 042
  30. ALLOPURINOL [Concomitant]
     Dates: start: 20071001, end: 20071116
  31. PANTOPRAZOLE [Concomitant]
     Dosage: DRUG NAME REPORTED AS SOMEC
     Dates: start: 20071001, end: 20080101
  32. LORAZEPAM [Concomitant]
     Dates: start: 20080103, end: 20080101
  33. SLOW-K [Concomitant]
     Dosage: TAKEN TWICE DAILY
  34. FUROSEMIDE [Concomitant]
     Dosage: DRUG NAME: FREUSEMIDE
  35. SPIRONOLACTONE [Concomitant]
     Dates: start: 20080516, end: 20080719
  36. ACETAMINOPHEN [Concomitant]
     Dates: start: 20080501, end: 20080501
  37. KYTRIL [Concomitant]
     Dates: start: 20080410, end: 20080410
  38. CLARATYNE [Concomitant]
     Dates: start: 20080301, end: 20080301
  39. AVASTIN [Suspect]
     Indication: DIFFUSE LARGE B-CELL LYMPHOMA
     Route: 042
  40. MABTHERA [Suspect]
     Indication: DIFFUSE LARGE B-CELL LYMPHOMA
     Route: 042
  41. OXYCONTIN [Concomitant]
     Dates: start: 20071007, end: 20080101
  42. TEMAZEPAM [Concomitant]
     Dates: start: 20071031, end: 20080101
  43. OXYCODONE HCL [Concomitant]
     Dates: start: 20071114, end: 20080101
  44. BACTRIM [Concomitant]
     Dosage: TOTAL DAILY DOSE 875MG/125 MG.
     Dates: start: 20071130, end: 20080204
  45. CENTRUM [Concomitant]
     Dosage: DRUG NAME: CENTRUM MULTIVITIS
  46. ACETAMINOPHEN [Concomitant]
     Dates: start: 20080410, end: 20080410

REACTIONS (4)
  - GASTRIC PERFORATION [None]
  - ASCITES [None]
  - SPLENOMEGALY [None]
  - DEEP VEIN THROMBOSIS [None]
